FAERS Safety Report 16796712 (Version 1)
Quarter: 2019Q3

REPORT INFORMATION
  Report Type: Report from Study
  Country: US (occurrence: US)
  Receive Date: 20190911
  Receipt Date: 20190911
  Transmission Date: 20191005
  Serious: Yes (Hospitalization)
  Sender: FDA-Public Use
  Company Number: US-CELGENEUS-USA-20190901763

PATIENT
  Age: 77 Year
  Sex: Male
  Weight: 81 kg

DRUGS (30)
  1. APIXABAN [Concomitant]
     Active Substance: APIXABAN
     Indication: PRODUCT USED FOR UNKNOWN INDICATION
     Dosage: 2.5 MG X 2 X 1 DAYS
     Route: 048
     Dates: start: 201811
  2. METFORMIN [Concomitant]
     Active Substance: METFORMIN HYDROCHLORIDE
     Indication: PRODUCT USED FOR UNKNOWN INDICATION
     Dosage: 500 MG X 2 X 1 DAYS
     Route: 048
     Dates: start: 201607, end: 20190821
  3. ACYCLOVIR. [Concomitant]
     Active Substance: ACYCLOVIR
     Indication: PRODUCT USED FOR UNKNOWN INDICATION
     Dosage: 400 MG X 2 X 1 DAYS
     Route: 048
     Dates: start: 20190718
  4. ALBUTEROL SULFATE. [Concomitant]
     Active Substance: ALBUTEROL SULFATE
     Indication: ADVERSE EVENT
     Dosage: 10 MG X ONCE
     Route: 055
     Dates: start: 20190901, end: 20190901
  5. OXYCODONE-ACETAMINOPHEN 5-325 [Concomitant]
     Active Substance: ACETAMINOPHEN\OXYCODONE HYDROCHLORIDE
     Indication: PRODUCT USED FOR UNKNOWN INDICATION
     Dosage: 1 TABLET X PRN
     Route: 048
     Dates: start: 20190721
  6. POLYETHELENE GLYCOL [Concomitant]
     Active Substance: POLYETHYLENE GLYCOL 3350
     Indication: ADVERSE EVENT
     Dosage: 17 G X 1 X 1 DAYS
     Route: 048
     Dates: start: 20190902, end: 20190902
  7. FEDRATINIB [Suspect]
     Active Substance: FEDRATINIB
     Indication: MYELOFIBROSIS
     Dosage: 400
     Route: 048
     Dates: start: 20190816, end: 20190816
  8. ERGOCALCIFEROL (D2) [Concomitant]
     Indication: PRODUCT USED FOR UNKNOWN INDICATION
     Dosage: 1 CAPSULE X 1 X 1 WEEKS
     Route: 048
     Dates: start: 2009
  9. FUROSEMIDE. [Concomitant]
     Active Substance: FUROSEMIDE
     Indication: ADVERSE EVENT
     Dosage: 20 MG X ONCE
     Route: 042
     Dates: start: 20190902, end: 20190902
  10. INSULIN (REGULAR) [Concomitant]
     Active Substance: INSULIN NOS
     Indication: ADVERSE EVENT
     Dosage: 10 U X ONCE
     Route: 042
     Dates: start: 20190831, end: 20190831
  11. ONDANSETRON [Concomitant]
     Active Substance: ONDANSETRON
     Indication: PRODUCT USED FOR UNKNOWN INDICATION
     Dosage: 4 MG X PRN
     Route: 048
     Dates: start: 20190821
  12. SODIUM POLYSTYRENE SULFON-SORB [Concomitant]
     Indication: ADVERSE EVENT
     Dosage: 30 G X ONCE
     Route: 048
     Dates: start: 20190831, end: 20190831
  13. DEXTROSE 50% [Concomitant]
     Active Substance: DEXTROSE
     Indication: ADVERSE EVENT
     Dosage: 25 G X ONCE
     Route: 042
     Dates: start: 20190901, end: 20190901
  14. SODIUM CHLORIDE 0.9% [Concomitant]
     Active Substance: SODIUM CHLORIDE
     Indication: ADVERSE EVENT
     Dosage: 100 ML/H X CONTINUOUS
     Route: 042
     Dates: start: 20190831, end: 20190901
  15. ALLOPURINOL. [Concomitant]
     Active Substance: ALLOPURINOL
     Indication: PRODUCT USED FOR UNKNOWN INDICATION
     Dosage: 150 MG X 1 X 1 DAYS
     Route: 048
     Dates: start: 2005, end: 2019
  16. DIPHENHYDRAMINE. [Concomitant]
     Active Substance: DIPHENHYDRAMINE
     Indication: PRODUCT USED FOR UNKNOWN INDICATION
     Dosage: 25 MG X PRN
     Route: 048
     Dates: start: 20190410
  17. INSULIN (REGULAR) [Concomitant]
     Active Substance: INSULIN NOS
     Indication: ADVERSE EVENT
     Dosage: 10 U X ONCE
     Route: 042
     Dates: start: 20190902, end: 20190902
  18. ALLOPURINOL. [Concomitant]
     Active Substance: ALLOPURINOL
     Indication: PRODUCT USED FOR UNKNOWN INDICATION
     Dosage: 100 MG X 1 X 1 DAYS
     Route: 048
     Dates: start: 20190725
  19. ALBUTEROL SULFATE. [Concomitant]
     Active Substance: ALBUTEROL SULFATE
     Indication: ADVERSE EVENT
     Dosage: 10 MG X ONCE
     Route: 055
     Dates: start: 20190831, end: 20190831
  20. DEXTROSE 50% [Concomitant]
     Active Substance: DEXTROSE
     Indication: ADVERSE EVENT
     Dosage: 25 G X ONCE
     Route: 042
     Dates: start: 20190831, end: 20190831
  21. DEXTROSE 50% [Concomitant]
     Active Substance: DEXTROSE
     Indication: ADVERSE EVENT
     Dosage: 25 G X ONCE
     Route: 042
     Dates: start: 20190902, end: 20190902
  22. ALOGLIPTIN. [Concomitant]
     Active Substance: ALOGLIPTIN
     Indication: PRODUCT USED FOR UNKNOWN INDICATION
     Dosage: 12.5 MG X 1 X 1 DAYS
     Route: 048
     Dates: start: 2018
  23. ACETAMINOPHEN. [Concomitant]
     Active Substance: ACETAMINOPHEN
     Indication: PRODUCT USED FOR UNKNOWN INDICATION
     Dosage: 650 MG X PRN
     Route: 048
     Dates: start: 20190419
  24. INSULIN (REGULAR) [Concomitant]
     Active Substance: INSULIN NOS
     Indication: ADVERSE EVENT
     Dosage: 10 U X ONCE
     Route: 042
     Dates: start: 20190901, end: 20190901
  25. SODIUM POLYSTYRENE [Concomitant]
     Active Substance: SODIUM POLYSTYRENE SULFONATE
     Indication: ADVERSE EVENT
     Dosage: 60 ML X ONCE
     Route: 048
     Dates: start: 20190827, end: 20190827
  26. SILDENAFIL CITRATE. [Concomitant]
     Active Substance: SILDENAFIL CITRATE
     Indication: PRODUCT USED FOR UNKNOWN INDICATION
     Dosage: 100 MG X PRN
     Route: 048
     Dates: start: 201807
  27. DEXTROSE 50% [Concomitant]
     Active Substance: DEXTROSE
     Indication: ADVERSE EVENT
     Dosage: 25 G X ONCE
     Route: 042
     Dates: start: 20190901, end: 20190901
  28. INSULIN (REGULAR) [Concomitant]
     Active Substance: INSULIN NOS
     Indication: ADVERSE EVENT
     Dosage: 10 U X ONCE
     Route: 042
     Dates: start: 20190901, end: 20190901
  29. ALBUTEROL SULFATE. [Concomitant]
     Active Substance: ALBUTEROL SULFATE
     Indication: ADVERSE EVENT
     Dosage: 10 MG X ONCE
     Route: 055
     Dates: start: 20190901, end: 20190901
  30. FUROSEMIDE. [Concomitant]
     Active Substance: FUROSEMIDE
     Indication: ADVERSE EVENT
     Dosage: 20 MG X 1 X 1 DAYS
     Route: 048
     Dates: start: 20190812

REACTIONS (1)
  - Hyperkalaemia [Recovering/Resolving]

NARRATIVE: CASE EVENT DATE: 20190826
